FAERS Safety Report 15660980 (Version 2)
Quarter: 2018Q4

REPORT INFORMATION
  Report Type: Report from Study
  Country: TW (occurrence: TW)
  Receive Date: 20181127
  Receipt Date: 20181226
  Transmission Date: 20190205
  Serious: Yes (Death, Hospitalization)
  Sender: FDA-Public Use
  Company Number: TW-JNJFOC-20181131196

PATIENT
  Age: 77 Year
  Sex: Female
  Weight: 52 kg

DRUGS (5)
  1. HYDROXYCHLOROQUINE SULFATE. [Concomitant]
     Active Substance: HYDROXYCHLOROQUINE SULFATE
     Indication: RHEUMATOID ARTHRITIS
     Route: 048
     Dates: start: 20171030, end: 20181116
  2. LEFLUNOMIDE. [Concomitant]
     Active Substance: LEFLUNOMIDE
     Indication: RHEUMATOID ARTHRITIS
     Route: 048
     Dates: start: 20171228, end: 20181116
  3. FUROSEMIDE. [Concomitant]
     Active Substance: FUROSEMIDE
     Indication: OEDEMA
     Route: 048
     Dates: start: 20180517, end: 20181116
  4. PREDNISOLONE. [Concomitant]
     Active Substance: PREDNISOLONE
     Indication: RHEUMATOID ARTHRITIS
     Route: 048
     Dates: start: 20180809, end: 20181116
  5. SIMPONI [Suspect]
     Active Substance: GOLIMUMAB
     Indication: RHEUMATOID ARTHRITIS
     Route: 058
     Dates: start: 20180705, end: 20181011

REACTIONS (9)
  - Septic shock [Fatal]
  - Aortic stenosis [Fatal]
  - Small intestine gangrene [Fatal]
  - Atrial fibrillation [Unknown]
  - Cardiac failure congestive [Unknown]
  - Pulmonary oedema [Unknown]
  - Sinus node dysfunction [Unknown]
  - Intestinal ischaemia [Fatal]
  - Coronary artery stenosis [Unknown]

NARRATIVE: CASE EVENT DATE: 2018
